FAERS Safety Report 7005982-X (Version None)
Quarter: 2010Q3

REPORT INFORMATION
  Report Type: 
  Country: None (occurrence: None)
  Receive Date: 20100921
  Receipt Date: 20100916
  Transmission Date: 20110219
  Serious: Yes (Death)
  Sender: FDA-Public Use
  Company Number: US-CELGENEUS-163-21880-10072010

PATIENT
  Sex: Male

DRUGS (3)
  1. REVLIMID [Suspect]
     Indication: MULTIPLE MYELOMA
     Route: 048
     Dates: start: 20100401, end: 20100601
  2. REVLIMID [Suspect]
     Route: 048
     Dates: start: 20100601, end: 20100701
  3. THALOMID [Suspect]
     Indication: MULTIPLE MYELOMA
     Route: 065
     Dates: start: 20100701, end: 20100101

REACTIONS (2)
  - DEATH [None]
  - MULTIPLE MYELOMA [None]
